FAERS Safety Report 14370600 (Version 1)
Quarter: 2018Q1

REPORT INFORMATION
  Report Type: Spontaneous
  Country: GB (occurrence: GB)
  Receive Date: 20180110
  Receipt Date: 20180110
  Transmission Date: 20180509
  Serious: Yes (Death)
  Sender: FDA-Public Use
  Company Number: GB-BAUSCH-BL-2017-036442

PATIENT
  Age: 68 Year
  Sex: Male
  Weight: 101.6 kg

DRUGS (4)
  1. AMLODIPINE [Concomitant]
     Active Substance: AMLODIPINE BESYLATE
     Indication: HYPERTENSION
  2. NYTOL [Suspect]
     Active Substance: DIPHENHYDRAMINE HYDROCHLORIDE
     Indication: SLEEP DISORDER
     Dosage: IN TOTAL
     Route: 048
     Dates: start: 20170525, end: 20170525
  3. RAMIPRIL. [Concomitant]
     Active Substance: RAMIPRIL
     Indication: HYPERTENSION
  4. DIAZEPAM. [Suspect]
     Active Substance: DIAZEPAM
     Indication: ANXIETY
     Dosage: TAKEN OFF AT NIGHT DUE TO SLEEP APNEA
     Route: 065

REACTIONS (4)
  - Confusional state [Not Recovered/Not Resolved]
  - Judgement impaired [Not Recovered/Not Resolved]
  - Completed suicide [Fatal]
  - Drug interaction [Unknown]

NARRATIVE: CASE EVENT DATE: 20170525
